FAERS Safety Report 15637269 (Version 1)
Quarter: 2018Q4

REPORT INFORMATION
  Report Type: Spontaneous
  Country: JP (occurrence: JP)
  Receive Date: 20181120
  Receipt Date: 20181120
  Transmission Date: 20190205
  Serious: Yes (Hospitalization)
  Sender: FDA-Public Use
  Company Number: JP-TEVA-2018-JP-977191

PATIENT
  Age: 66 Year
  Sex: Male

DRUGS (4)
  1. 5-FLUOROURACIL [Concomitant]
     Active Substance: FLUOROURACIL
     Indication: OESOPHAGEAL SQUAMOUS CELL CARCINOMA
     Dosage: BY CONTINUOUS INFUSION ON DAYS 1-5; FOR A TOTAL OF TWO COURSES EVERY THREE WEEKS.
     Route: 041
  2. VANCOMYCIN [Suspect]
     Active Substance: VANCOMYCIN
     Indication: STAPHYLOCOCCAL INFECTION
     Dosage: FOR FOUR TIMES VIA FEEDING TUBE
     Route: 050
  3. CISPLATIN. [Concomitant]
     Active Substance: CISPLATIN
     Indication: OESOPHAGEAL SQUAMOUS CELL CARCINOMA
     Dosage: BY 2-HOUR IV DRIP INFUSION ON DAY 1; FOR A TOTAL OF TWO COURSES EVERY THREE WEEKS.
     Route: 041
  4. METRONIDAZOLE. [Concomitant]
     Active Substance: METRONIDAZOLE
     Indication: STAPHYLOCOCCAL INFECTION
     Dosage: ONCE
     Route: 050

REACTIONS (1)
  - Staphylococcal infection [Unknown]
